FAERS Safety Report 11732120 (Version 1)
Quarter: 2015Q4

REPORT INFORMATION
  Report Type: Spontaneous
  Country: US (occurrence: US)
  Receive Date: 20151110
  Receipt Date: 20151110
  Transmission Date: 20160304
  Serious: No
  Sender: FDA-Public Use
  Company Number: US-ELI_LILLY_AND_COMPANY-US201202003387

PATIENT
  Age: 76 Year
  Sex: Female

DRUGS (2)
  1. FORTEO [Suspect]
     Active Substance: TERIPARATIDE
     Dosage: 20 UG, QD
     Route: 058
     Dates: end: 20120306
  2. FORTEO [Suspect]
     Active Substance: TERIPARATIDE
     Indication: OSTEOPOROSIS
     Dosage: 20 UG, QD
     Route: 058
     Dates: start: 201202

REACTIONS (16)
  - Abdominal discomfort [Unknown]
  - Adverse event [Unknown]
  - Muscle spasms [Unknown]
  - Poor quality sleep [Unknown]
  - Chills [Unknown]
  - Dysgeusia [Unknown]
  - Injection site bruising [Unknown]
  - Abdominal distension [Unknown]
  - Tremor [Unknown]
  - Oedema mouth [Unknown]
  - Dry mouth [Unknown]
  - Pain in extremity [Unknown]
  - Restless legs syndrome [Unknown]
  - Paraesthesia oral [Unknown]
  - Feeling cold [Unknown]
  - Oral discomfort [Unknown]

NARRATIVE: CASE EVENT DATE: 20120205
